FAERS Safety Report 7036162-X (Version None)
Quarter: 2010Q4

REPORT INFORMATION
  Report Type: 
  Country: None (occurrence: None)
  Receive Date: 20101008
  Receipt Date: 20100429
  Transmission Date: 20110411
  Serious: No
  Sender: FDA-Public Use
  Company Number: US-BRISTOL-MYERS SQUIBB COMPANY-15080666

PATIENT
  Age: 78 Year
  Sex: Female

DRUGS (1)
  1. AVAPRO [Suspect]
     Dosage: WHITE TABLET 300MG.

REACTIONS (4)
  - DIARRHOEA [None]
  - DIZZINESS [None]
  - FATIGUE [None]
  - PAIN [None]
